FAERS Safety Report 4658782-X (Version None)
Quarter: 2005Q2

REPORT INFORMATION
  Report Type: 
  Country: None (occurrence: None)
  Receive Date: 20050509
  Receipt Date: 20050422
  Transmission Date: 20051028
  Serious: Yes (Hospitalization)
  Sender: FDA-Public Use
  Company Number: RENA-11362

PATIENT
  Age: 60 Year
  Sex: Male

DRUGS (5)
  1. RENAGEL [Suspect]
     Indication: HYPERPHOSPHATAEMIA
     Dosage: 0.8 G BID PO
     Route: 048
     Dates: start: 20040801, end: 20050413
  2. RENAGEL [Suspect]
     Indication: HYPERPHOSPHATAEMIA
     Dosage: 2.4 G TID PO
     Route: 048
  3. RENAGEL [Suspect]
     Indication: HYPERPHOSPHATAEMIA
     Dosage: 1.6 G DAILY
     Route: 048
     Dates: start: 20050417, end: 20050417
  4. RENAGEL [Suspect]
     Indication: HYPERPHOSPHATAEMIA
     Dosage: 1.6 G BID PO
     Route: 048
     Dates: start: 20050418, end: 20050418
  5. RENAGEL [Suspect]
     Indication: HYPERPHOSPHATAEMIA
     Dosage: 1.6 G DAILY PO
     Route: 048
     Dates: start: 20050419, end: 20050419

REACTIONS (3)
  - DIABETIC GASTROPARESIS [None]
  - TOE AMPUTATION [None]
  - VOMITING [None]
